FAERS Safety Report 8612095-X (Version None)
Quarter: 2012Q3

REPORT INFORMATION
  Report Type: 
  Country: None (occurrence: None)
  Receive Date: 20120822
  Receipt Date: 20120815
  Transmission Date: 20120928
  Serious: Yes (Hospitalization)
  Sender: FDA-Public Use
  Company Number: BR-B.I. PHARMACEUTICALS,INC./RIDGEFIELD-2012-BR-00811BR

PATIENT
  Sex: Female

DRUGS (4)
  1. PRADAXA [Suspect]
     Indication: ANTICOAGULANT THERAPY
     Dosage: 220 MG
     Route: 048
     Dates: start: 20120601
  2. NEXUM [Concomitant]
     Indication: ABDOMINAL DISCOMFORT
  3. NORELAT [Concomitant]
     Indication: SLEEP DISORDER
  4. BROMOPRIDA [Concomitant]
     Indication: ABDOMINAL DISCOMFORT

REACTIONS (1)
  - CHEST PAIN [None]
